FAERS Safety Report 7460821-8 (Version None)
Quarter: 2011Q2

REPORT INFORMATION
  Report Type: 
  Country: None (occurrence: None)
  Receive Date: 20110505
  Receipt Date: 20110426
  Transmission Date: 20111010
  Serious: Yes (Hospitalization)
  Sender: FDA-Public Use
  Company Number: IE-AMGEN-IRLSP2011021791

PATIENT
  Age: 77 Year
  Sex: Female

DRUGS (12)
  1. SIMVASTATIN [Concomitant]
  2. PREDNESOL                          /00016202/ [Concomitant]
  3. ASPIRIN [Concomitant]
  4. ONE ALPHA [Concomitant]
  5. NEOCLARITYN [Concomitant]
  6. ARIPIPRAZOLE [Concomitant]
  7. SEREVENT [Concomitant]
  8. MIRTAZAPINE [Concomitant]
  9. BECLAZONE [Concomitant]
  10. ARANESP [Suspect]
     Indication: RENAL FAILURE CHRONIC
     Dosage: 30 A?G, QWK
     Route: 058
  11. ATROVENT [Concomitant]
  12. EPILIM [Concomitant]

REACTIONS (1)
  - MYOCARDIAL INFARCTION [None]
